FAERS Safety Report 7959993-8 (Version None)
Quarter: 2011Q4

REPORT INFORMATION
  Report Type: 
  Country: None (occurrence: None)
  Receive Date: 20111206
  Receipt Date: 20111128
  Transmission Date: 20120403
  Serious: Yes (Other)
  Sender: FDA-Public Use
  Company Number: PHHY2011VE105825

PATIENT
  Sex: Female

DRUGS (5)
  1. PLAVIX [Concomitant]
  2. CALCIBON (CALCIUM CITRATE) [Concomitant]
  3. LANSOPRAZOLE [Concomitant]
  4. ATACAND HCT [Concomitant]
  5. ZOLEDRONOC ACID [Suspect]
     Indication: OSTEOPOROSIS
     Dosage: 5 MG ONCE A YEAR
     Route: 042
     Dates: start: 20110801

REACTIONS (2)
  - BLOOD PRESSURE INCREASED [None]
  - ASTHMA [None]
